FAERS Safety Report 5089480-9 (Version None)
Quarter: 2006Q3

REPORT INFORMATION
  Report Type: 
  Country: None (occurrence: None)
  Receive Date: 20060727
  Receipt Date: 20060614
  Transmission Date: 20061208
  Serious: Yes (Other)
  Sender: FDA-Public Use
  Company Number: 2006077039

PATIENT
  Age: 39 Year
  Sex: Female
  Weight: 68.0396 kg

DRUGS (12)
  1. LYRICA [Suspect]
     Indication: MIGRAINE
     Dosage: 75 MG (75 MG, 1 IN 1 D) ORAL
     Route: 048
     Dates: start: 20060217
  2. ZOLOFT [Concomitant]
  3. BUSPAR [Concomitant]
  4. WELLBUTRIN [Concomitant]
  5. DESOGESTREL W/ ESTRADIOL (DESOGESTREL, ESTRADIOL) [Concomitant]
  6. DILAUDID [Concomitant]
  7. RELPAX [Concomitant]
  8. FLONASE [Concomitant]
  9. MONTELUKAST SODIUM (MONTELUKAST SODIUM ) [Concomitant]
  10. TAVIST [Concomitant]
  11. TAVIST [Concomitant]
  12. ATARAX (HYDROXYSINE HYDROCHLORIDE) [Concomitant]

REACTIONS (5)
  - FEELING ABNORMAL [None]
  - LOGORRHOEA [None]
  - MIGRAINE [None]
  - MOOD ALTERED [None]
  - WEIGHT INCREASED [None]
